FAERS Safety Report 15818737 (Version 1)
Quarter: 2019Q1

REPORT INFORMATION
  Report Type: Spontaneous
  Country: CA (occurrence: CA)
  Receive Date: 20190113
  Receipt Date: 20190113
  Transmission Date: 20190417
  Serious: Yes (Other)
  Sender: FDA-Public Use
  Company Number: CA-009507513-1901CAN002393

PATIENT
  Age: 36 Year
  Sex: Female

DRUGS (1)
  1. ASMANEX [Suspect]
     Active Substance: MOMETASONE FUROATE
     Indication: ASTHMA
     Dosage: UNK
     Route: 048
     Dates: start: 2017

REACTIONS (4)
  - Product quality issue [Unknown]
  - Asthma [Unknown]
  - Incorrect dose administered [Unknown]
  - Pneumonia [Unknown]

NARRATIVE: CASE EVENT DATE: 201812
